FAERS Safety Report 18313124 (Version 1)
Quarter: 2020Q3

REPORT INFORMATION
  Report Type: Spontaneous
  Country: MY (occurrence: MY)
  Receive Date: 20200925
  Receipt Date: 20200925
  Transmission Date: 20201103
  Serious: Yes (Death)
  Sender: FDA-Public Use
  Company Number: MY-PFIZER INC-2020369076

PATIENT

DRUGS (1)
  1. ERAXIS [Suspect]
     Active Substance: ANIDULAFUNGIN
     Indication: SYSTEMIC CANDIDA
     Dosage: UNK

REACTIONS (1)
  - Drug ineffective [Fatal]
